FAERS Safety Report 11221051 (Version 2)
Quarter: 2016Q3

REPORT INFORMATION
  Report Type: Spontaneous
  Country: US (occurrence: US)
  Receive Date: 20150626
  Receipt Date: 20160812
  Transmission Date: 20161109
  Serious: Yes (Other)
  Sender: FDA-Public Use
  Company Number: US-BAYER-2015-347409

PATIENT
  Sex: Female
  Weight: 65.76 kg

DRUGS (1)
  1. AVELOX [Suspect]
     Active Substance: MOXIFLOXACIN HYDROCHLORIDE
     Indication: INFLUENZA
     Dosage: 400 MG, UNK
     Dates: start: 20111130, end: 20111209

REACTIONS (7)
  - Injury [None]
  - Emotional distress [None]
  - Muscle spasms [None]
  - Pain [None]
  - Gait disturbance [None]
  - Neuropathy peripheral [Not Recovered/Not Resolved]
  - Altered visual depth perception [None]

NARRATIVE: CASE EVENT DATE: 2011
